FAERS Safety Report 7687229-4 (Version None)
Quarter: 2011Q3

REPORT INFORMATION
  Report Type: 
  Country: None (occurrence: None)
  Receive Date: 20110816
  Receipt Date: 20110811
  Transmission Date: 20111222
  Serious: Yes (Hospitalization)
  Sender: FDA-Public Use
  Company Number: US-ABBOTT-09P-163-0602948-00

PATIENT
  Sex: Female
  Weight: 36.32 kg

DRUGS (6)
  1. ALBUTEROL SULFATE AUTOHALER [Concomitant]
     Indication: EMPHYSEMA
     Route: 055
  2. DILANTIN [Concomitant]
     Indication: CONVULSION
  3. HUMIRA [Suspect]
     Indication: CROHN'S DISEASE
     Route: 058
     Dates: start: 20090706, end: 20090901
  4. ENTOCORT EC [Concomitant]
     Indication: CROHN'S DISEASE
  5. ASACOL [Concomitant]
     Indication: CROHN'S DISEASE
  6. ADVAIR DISKUS 100/50 [Concomitant]
     Indication: EMPHYSEMA
     Dosage: 250/50 DAILY

REACTIONS (11)
  - CARDIAC FAILURE CONGESTIVE [None]
  - LIVER FUNCTION TEST ABNORMAL [None]
  - DRUG INEFFECTIVE [None]
  - RESPIRATORY ARREST [None]
  - INFECTION [None]
  - MEMORY IMPAIRMENT [None]
  - PYREXIA [None]
  - INJECTION SITE HAEMATOMA [None]
  - CHOLECYSTITIS [None]
  - INJECTION SITE PAIN [None]
  - CROHN'S DISEASE [None]
